FAERS Safety Report 21977183 (Version 1)
Quarter: 2023Q1

REPORT INFORMATION
  Report Type: Spontaneous
  Country: TW (occurrence: TW)
  Receive Date: 20230210
  Receipt Date: 20230210
  Transmission Date: 20230418
  Serious: Yes (Hospitalization)
  Sender: FDA-Public Use
  Company Number: TW-JNJFOC-20230205905

PATIENT
  Age: 73 Year
  Sex: Female
  Weight: 63.2 kg

DRUGS (7)
  1. SIMPONI [Suspect]
     Active Substance: GOLIMUMAB
     Indication: Psoriatic arthropathy
     Route: 058
     Dates: start: 20150224
  2. SIMPONI [Suspect]
     Active Substance: GOLIMUMAB
  3. ARHEUMA [Concomitant]
     Indication: Rheumatoid arthritis
     Route: 048
     Dates: start: 20140415
  4. CALCIUM ACETATE [Concomitant]
     Active Substance: CALCIUM ACETATE
     Indication: Hyperphosphataemia
     Dates: start: 20201011
  5. LIPITOR [Concomitant]
     Active Substance: ATORVASTATIN CALCIUM
     Indication: Hypercholesterolaemia
     Dates: start: 20210427
  6. LIPITOR [Concomitant]
     Active Substance: ATORVASTATIN CALCIUM
     Indication: Hypertriglyceridaemia
  7. FYLIN [Concomitant]
     Indication: Cardiovascular disorder
     Dates: start: 20220719

REACTIONS (1)
  - Cerebral haemorrhage [Unknown]

NARRATIVE: CASE EVENT DATE: 20230121
